APPROVED DRUG PRODUCT: RELENZA
Active Ingredient: ZANAMIVIR
Strength: 5MG
Dosage Form/Route: POWDER;INHALATION
Application: N021036 | Product #001
Applicant: GLAXOSMITHKLINE
Approved: Jul 26, 1999 | RLD: Yes | RS: Yes | Type: RX